FAERS Safety Report 8935257 (Version 1)
Quarter: 2012Q4

REPORT INFORMATION
  Report Type: 
  Country: NZ (occurrence: NZ)
  Receive Date: 20121129
  Receipt Date: 20121129
  Transmission Date: 20130627
  Serious: Yes (Hospitalization, Other)
  Sender: FDA-Public Use
  Company Number: NZ-B.I. PHARMACEUTICALS,INC./RIDGEFIELD-2012-AU-01919AU

PATIENT
  Sex: Female

DRUGS (6)
  1. PRADAXA [Suspect]
     Indication: ATRIAL FIBRILLATION
     Dosage: 220 mg
     Dates: start: 201202, end: 201208
  2. ATORVASTATIN [Concomitant]
  3. METOPROLOL [Concomitant]
  4. THYROXIN [Concomitant]
  5. PANTOPRAZOLE [Concomitant]
  6. DIAZEPAM [Concomitant]

REACTIONS (3)
  - Renal failure acute [Not Recovered/Not Resolved]
  - Dehydration [Unknown]
  - Influenza like illness [Unknown]
